FAERS Safety Report 10401654 (Version 1)
Quarter: 2014Q1

REPORT INFORMATION
  Report Type: Spontaneous
  Country: US (occurrence: None)
  Receive Date: 20130815
  Receipt Date: 20130815
  Transmission Date: 20141002
  Serious: Yes (Other)
  Sender: FDA-Public Use
  Company Number: ADR-2012-01570

PATIENT
  Sex: Male

DRUGS (2)
  1. LIORESAL INTRATHECAL [Suspect]
     Indication: PAIN
  2. DILAUDID [Concomitant]

REACTIONS (6)
  - Pain [None]
  - Affect lability [None]
  - Paranoia [None]
  - Mental disorder [None]
  - Narcolepsy [None]
  - Sleep apnoea syndrome [None]
